FAERS Safety Report 4887573-X (Version None)
Quarter: 2006Q1

REPORT INFORMATION
  Report Type: 
  Country: None (occurrence: None)
  Receive Date: 20060123
  Receipt Date: 20051129
  Transmission Date: 20060701
  Serious: Yes (Death, Life-Threatening, Hospitalization, Other)
  Sender: FDA-Public Use
  Company Number: PHEH2005US12978

PATIENT
  Age: 61 Year
  Sex: Male

DRUGS (15)
  1. TEGRETOL [Suspect]
     Dosage: 300 MG, TID
     Route: 048
     Dates: end: 20050815
  2. DILANTIN [Concomitant]
  3. TEMODAR [Suspect]
     Indication: ASTROCYTOMA
     Dosage: UNK, UNK
     Route: 048
     Dates: start: 20050707, end: 20050801
  4. MOTRIN [Suspect]
     Dates: end: 20050815
  5. RADIATION THERAPY [Suspect]
     Dates: start: 20050707
  6. KEPPRA [Concomitant]
     Dosage: 500 MG, BID
  7. NSAID'S [Suspect]
  8. NORVASC [Concomitant]
     Dosage: 5 MG, QD
  9. ZOFRAN [Concomitant]
     Indication: NAUSEA
     Dosage: 8 MG, TID
  10. CELEXA [Concomitant]
     Indication: DEPRESSION
     Dosage: 20 MG, QD
     Dates: start: 20050707
  11. CARBATROL [Concomitant]
  12. VYTORIN [Concomitant]
  13. FISH OIL [Concomitant]
  14. XANAX [Concomitant]
  15. VICODIN [Concomitant]

REACTIONS (31)
  - ANAEMIA [None]
  - BLOOD CREATININE INCREASED [None]
  - BLOOD IMMUNOGLOBULIN G DECREASED [None]
  - BLOOD UREA INCREASED [None]
  - CHILLS [None]
  - COMA [None]
  - CONVULSION [None]
  - CSF LACTATE DEHYDROGENASE INCREASED [None]
  - CSF LYMPHOCYTE COUNT INCREASED [None]
  - CSF PROTEIN INCREASED [None]
  - CSF WHITE BLOOD CELL COUNT INCREASED [None]
  - DEATH [None]
  - DEPRESSED LEVEL OF CONSCIOUSNESS [None]
  - DEPRESSION [None]
  - DIALYSIS [None]
  - ENCEPHALITIS [None]
  - ENCEPHALOPATHY [None]
  - FATIGUE [None]
  - HYPOGAMMAGLOBULINAEMIA [None]
  - INTUBATION [None]
  - LUMBAR PUNCTURE ABNORMAL [None]
  - MENINGITIS ASEPTIC [None]
  - MENTAL STATUS CHANGES [None]
  - NAUSEA [None]
  - NEPHRITIS [None]
  - PNEUMONIA [None]
  - PYREXIA [None]
  - RENAL FAILURE ACUTE [None]
  - RESPIRATORY FAILURE [None]
  - SPUTUM CULTURE POSITIVE [None]
  - TREMOR [None]
